FAERS Safety Report 24345070 (Version 2)
Quarter: 2024Q4

REPORT INFORMATION
  Report Type: Spontaneous
  Country: US (occurrence: US)
  Receive Date: 20240920
  Receipt Date: 20241001
  Transmission Date: 20250114
  Serious: Yes (Other)
  Sender: TEVA
  Company Number: US-ABBVIE-5921553

PATIENT
  Age: 52 Year
  Sex: Female

DRUGS (4)
  1. ACITRETIN [Suspect]
     Active Substance: ACITRETIN
     Indication: Gastrointestinal carcinoma
     Route: 065
  2. ACITRETIN [Suspect]
     Active Substance: ACITRETIN
     Indication: Gastrointestinal carcinoma
     Route: 065
  3. ACITRETIN [Suspect]
     Active Substance: ACITRETIN
     Indication: Gastrointestinal carcinoma
     Route: 065
  4. ATORVASTATIN [Concomitant]
     Active Substance: ATORVASTATIN
     Indication: Hypercholesterolaemia
     Route: 065

REACTIONS (4)
  - Sebaceous carcinoma [Unknown]
  - Dermal cyst [Unknown]
  - Off label use [Unknown]
  - Neoplasm skin [Unknown]
